FAERS Safety Report 12076096 (Version 1)
Quarter: 2016Q1

REPORT INFORMATION
  Report Type: Spontaneous
  Country: US (occurrence: US)
  Receive Date: 20160215
  Receipt Date: 20160215
  Transmission Date: 20160526
  Serious: No
  Sender: FDA-Public Use
  Company Number: US-BRISTOL-MYERS SQUIBB COMPANY-BMS-2016-010531

PATIENT
  Sex: Female
  Weight: 73 kg

DRUGS (1)
  1. ELIQUIS [Suspect]
     Active Substance: APIXABAN
     Indication: CEREBROVASCULAR ACCIDENT PROPHYLAXIS
     Dosage: 5 MG, BID
     Route: 065

REACTIONS (11)
  - Back pain [Unknown]
  - Peripheral swelling [Unknown]
  - Nausea [Unknown]
  - Insomnia [Unknown]
  - Pain in extremity [Unknown]
  - Weight increased [Unknown]
  - Memory impairment [Unknown]
  - Renal disorder [Unknown]
  - Glomerular filtration rate decreased [Unknown]
  - Dyspnoea [Unknown]
  - Fatigue [Unknown]
